FAERS Safety Report 5644288-8 (Version None)
Quarter: 2008Q1

REPORT INFORMATION
  Report Type: 
  Country: None (occurrence: None)
  Receive Date: 20080229
  Receipt Date: 20080220
  Transmission Date: 20080703
  Serious: Yes (Other)
  Sender: FDA-Public Use
  Company Number: PHHY2008CH02034

PATIENT
  Age: 46 Year
  Sex: Female

DRUGS (1)
  1. EXFORGE [Suspect]
     Indication: HYPERTENSION
     Dosage: 10/160 MG/DAY
     Dates: start: 20070516, end: 20070814

REACTIONS (6)
  - DRUG INEFFECTIVE [None]
  - HYPERTENSION [None]
  - MENTAL DISORDER [None]
  - OEDEMA PERIPHERAL [None]
  - RESIDUAL URINE [None]
  - WEIGHT INCREASED [None]
